FAERS Safety Report 12401617 (Version 2)
Quarter: 2016Q2

REPORT INFORMATION
  Report Type: Spontaneous
  Country: US (occurrence: US)
  Receive Date: 20160525
  Receipt Date: 20160527
  Transmission Date: 20160815
  Serious: Yes (Other)
  Sender: FDA-Public Use
  Company Number: US-SA-2015SA173402

PATIENT
  Sex: Male

DRUGS (4)
  1. LANTUS [Suspect]
     Active Substance: INSULIN GLARGINE
     Indication: DIABETES MELLITUS
     Dosage: DOSE:15 UNIT(S)
     Route: 065
  2. NOVOLOG [Suspect]
     Active Substance: INSULIN ASPART
     Dosage: FREQUENCY: MEALTIMES? DOSE:15 UNIT(S)
     Route: 065
  3. LANTUS [Suspect]
     Active Substance: INSULIN GLARGINE
     Indication: DIABETES MELLITUS
     Route: 065
  4. NOVOLOG [Suspect]
     Active Substance: INSULIN ASPART
     Dosage: FREQUENCY: MEALTIMES? DOSE:5 UNIT(S)
     Route: 065

REACTIONS (6)
  - Weight increased [Unknown]
  - Skin disorder [Unknown]
  - Drug administration error [Unknown]
  - Blood glucose increased [Unknown]
  - Blood glucose decreased [Unknown]
  - Dry skin [Unknown]
